FAERS Safety Report 9507714 (Version 1)
Quarter: 2013Q3

REPORT INFORMATION
  Report Type: Spontaneous
  Country: IT (occurrence: None)
  Receive Date: 20130905
  Receipt Date: 20130905
  Transmission Date: 20140515
  Serious: Yes (Congenital Anomaly)
  Sender: FDA-Public Use
  Company Number: DIAZ20130008

PATIENT
  Sex: Female

DRUGS (2)
  1. DIAZEPAM (DIAZEPAM) (UNKNOWN) (DIAZEPAM) [Suspect]
     Route: 048
  2. METHADONE (METHADONE) [Suspect]
     Dosage: 30 MG, 1 IN 1 D, UNKNOWN

REACTIONS (3)
  - Congenital nystagmus [None]
  - Maternal drugs affecting foetus [None]
  - Premature baby [None]
